FAERS Safety Report 4475469-7 (Version None)
Quarter: 2004Q4

REPORT INFORMATION
  Report Type: 
  Country: None (occurrence: None)
  Receive Date: 20041014
  Receipt Date: 20041014
  Transmission Date: 20050328
  Serious: Yes (Other)
  Sender: FDA-Public Use
  Company Number: None

PATIENT
  Age: 45 Year
  Sex: Female
  Weight: 54.4316 kg

DRUGS (1)
  1. SEASONALE [Suspect]
     Dosage: 1 PILL DAY ORAL
     Route: 048
     Dates: start: 20040613, end: 20041013

REACTIONS (2)
  - MENORRHAGIA [None]
  - METRORRHAGIA [None]
